FAERS Safety Report 17932897 (Version 2)
Quarter: 2020Q2

REPORT INFORMATION
  Report Type: Spontaneous
  Country: US (occurrence: US)
  Receive Date: 20200623
  Receipt Date: 20200624
  Transmission Date: 20200714
  Serious: Yes (Other)
  Sender: FDA-Public Use
  Company Number: US-PFIZER INC-2020241680

PATIENT
  Age: 19 Year
  Sex: Female
  Weight: 77.11 kg

DRUGS (3)
  1. PRISTIQ EXTENDED-RELEASE [Suspect]
     Active Substance: DESVENLAFAXINE SUCCINATE
     Indication: ANXIETY
     Dosage: 25 MG
     Route: 048
     Dates: start: 2014
  2. PRISTIQ EXTENDED-RELEASE [Suspect]
     Active Substance: DESVENLAFAXINE SUCCINATE
     Dosage: 25MG TO TAKE 2 TABLETS TO MAKE 50MG]
  3. PRISTIQ EXTENDED-RELEASE [Suspect]
     Active Substance: DESVENLAFAXINE SUCCINATE
     Dosage: 50 MG, DAILY
     Route: 048
     Dates: start: 2014

REACTIONS (13)
  - Drug dependence [Unknown]
  - Product solubility abnormal [Unknown]
  - Fatigue [Unknown]
  - Withdrawal syndrome [Unknown]
  - Cerebral disorder [Unknown]
  - Seizure [Unknown]
  - Off label use [Unknown]
  - Feeling abnormal [Unknown]
  - Abdominal discomfort [Unknown]
  - Product use in unapproved indication [Unknown]
  - Product residue present [Unknown]
  - Nausea [Unknown]
  - Visual impairment [Unknown]
